FAERS Safety Report 8232315-3 (Version None)
Quarter: 2012Q1

REPORT INFORMATION
  Report Type: 
  Country: None (occurrence: None)
  Receive Date: 20120320
  Receipt Date: 20120312
  Transmission Date: 20120608
  Serious: Yes (Other)
  Sender: FDA-Public Use
  Company Number: AUR-APL-2012-00668

PATIENT
  Age: 35 Year
  Sex: Male
  Weight: 102.0593 kg

DRUGS (4)
  1. SUBOXONE (SUBOXONE /01687501/) [Concomitant]
  2. ZOMIG [Concomitant]
  3. REMERON [Concomitant]
  4. ZOLPIDEM [Suspect]
     Indication: SLEEP DISORDER
     Dosage: (1.5 MG, 1 D), ORAL
     Route: 048
     Dates: start: 20120122

REACTIONS (8)
  - PRODUCT QUALITY ISSUE [None]
  - WRONG TECHNIQUE IN DRUG USAGE PROCESS [None]
  - TREATMENT NONCOMPLIANCE [None]
  - DRUG INEFFECTIVE [None]
  - TABLET PHYSICAL ISSUE [None]
  - INSOMNIA [None]
  - PRODUCT TASTE ABNORMAL [None]
  - INCORRECT DOSE ADMINISTERED [None]
